FAERS Safety Report 21101376 (Version 1)
Quarter: 2022Q3

REPORT INFORMATION
  Report Type: Spontaneous
  Country: US (occurrence: None)
  Receive Date: 20220719
  Receipt Date: 20220719
  Transmission Date: 20221026
  Serious: No
  Sender: FDA-Public Use
  Company Number: None

PATIENT

DRUGS (2)
  1. NOVOLIN 70/30 [Suspect]
     Active Substance: INSULIN HUMAN
  2. NOVOLIN R [Suspect]
     Active Substance: INSULIN HUMAN

REACTIONS (3)
  - Wrong product administered [None]
  - Product dispensing error [None]
  - Product colour issue [None]
